FAERS Safety Report 4662264-9 (Version None)
Quarter: 2005Q2

REPORT INFORMATION
  Report Type: 
  Country: None (occurrence: None)
  Receive Date: 20050512
  Receipt Date: 20050426
  Transmission Date: 20051028
  Serious: Yes (Hospitalization)
  Sender: FDA-Public Use
  Company Number: USA050494681

PATIENT
  Age: 65 Year
  Sex: Male

DRUGS (4)
  1. ZYPREXA [Suspect]
     Indication: SLEEP DISORDER
     Dosage: 20 MG/1 DAY
     Dates: start: 20041214, end: 20050227
  2. CELEXA [Concomitant]
  3. PRAVACID (LANSOPRAOZLE) [Concomitant]
  4. MAXZIDE [Concomitant]

REACTIONS (4)
  - EFFUSION [None]
  - EXTRAPYRAMIDAL DISORDER [None]
  - LUNG DISORDER [None]
  - POST PROCEDURAL COMPLICATION [None]
